FAERS Safety Report 9370900 (Version 2)
Quarter: 2013Q3

REPORT INFORMATION
  Report Type: Spontaneous
  Country: US (occurrence: US)
  Receive Date: 20130627
  Receipt Date: 20130724
  Transmission Date: 20140515
  Serious: No
  Sender: FDA-Public Use
  Company Number: US-009507513-1306USA009499

PATIENT
  Age: 38 Year
  Sex: Female
  Weight: 87.53 kg

DRUGS (1)
  1. IMPLANON [Suspect]
     Indication: CONTRACEPTION
     Dosage: UNK
     Route: 059
     Dates: start: 20100617, end: 20130719

REACTIONS (5)
  - Device difficult to use [Recovered/Resolved]
  - Device deployment issue [Recovered/Resolved]
  - Incorrect drug administration duration [Unknown]
  - Medical device complication [Recovered/Resolved]
  - No adverse event [Unknown]
